FAERS Safety Report 5638605-2 (Version None)
Quarter: 2008Q1

REPORT INFORMATION
  Report Type: 
  Country: None (occurrence: None)
  Receive Date: 20080226
  Receipt Date: 20071022
  Transmission Date: 20080703
  Serious: No
  Sender: FDA-Public Use
  Company Number: A0661006A

PATIENT
  Sex: Female

DRUGS (6)
  1. IMITREX [Suspect]
     Indication: MIGRAINE
     Dosage: 6MG AS REQUIRED
     Route: 048
     Dates: start: 20040101
  2. IMITREX [Suspect]
     Dosage: 100MG AS REQUIRED
     Route: 048
  3. IMITREX [Concomitant]
  4. PERCOCET [Concomitant]
  5. SOMA [Concomitant]
  6. ORTHO TRI-CYCLEN [Concomitant]

REACTIONS (2)
  - DRUG INEFFECTIVE [None]
  - PHARMACEUTICAL PRODUCT COMPLAINT [None]
